FAERS Safety Report 9787628 (Version 1)
Quarter: 2013Q4

REPORT INFORMATION
  Report Type: Spontaneous
  Country: FR (occurrence: None)
  Receive Date: 20131226
  Receipt Date: 20131226
  Transmission Date: 20140711
  Serious: Yes (Life-Threatening)
  Sender: FDA-Public Use
  Company Number: 2013-FR-004574

PATIENT
  Age: 38 Year
  Sex: Female

DRUGS (3)
  1. ERWINASE [Suspect]
     Indication: T-CELL TYPE ACUTE LEUKAEMIA
     Route: 041
     Dates: start: 20131106, end: 20131106
  2. METHOTREXATE (METHOTREXATE) [Concomitant]
  3. VINCRISTINE (VINCRISTINE SULFATE) [Concomitant]

REACTIONS (3)
  - Headache [None]
  - Malaise [None]
  - Vomiting [None]
